FAERS Safety Report 17721543 (Version 1)
Quarter: 2020Q2

REPORT INFORMATION
  Report Type: Spontaneous
  Country: US (occurrence: US)
  Receive Date: 20200429
  Receipt Date: 20200429
  Transmission Date: 20200714
  Serious: Yes (Other)
  Sender: FDA-Public Use
  Company Number: US-ALVOGEN-2020-ALVOGEN-102401

PATIENT
  Age: 40 Year
  Sex: Female
  Weight: 63.64 kg

DRUGS (3)
  1. ASCORBIC ACID/BETACAROTENE/CALCIUM CARBONATE/COLECALCIFEROL/CYANOCOBALAMIN/DL-ALPHA TOCOPHERYL ACETA [Concomitant]
     Indication: SUPPLEMENTATION THERAPY
  2. FOLIC ACID. [Concomitant]
     Active Substance: FOLIC ACID
     Indication: SUPPLEMENTATION THERAPY
  3. NITROFURANTOIN MONOHYDRATE MACROCRYSTALS [Suspect]
     Active Substance: NITROFURANTOIN\NITROFURANTOIN MONOHYDRATE
     Indication: URINARY TRACT INFECTION
     Dosage: ONE PILL IN THE MORNING THEN?ONE PILL AT NIGHT
     Dates: start: 20200102

REACTIONS (5)
  - Dysphagia [Unknown]
  - Exposure during pregnancy [Unknown]
  - Pain in extremity [Unknown]
  - Neuropathy peripheral [Unknown]
  - Urticaria [Recovering/Resolving]

NARRATIVE: CASE EVENT DATE: 20200102
